FAERS Safety Report 13001912 (Version 1)
Quarter: 2016Q4

REPORT INFORMATION
  Report Type: Report from Study
  Country: US (occurrence: US)
  Receive Date: 20161206
  Receipt Date: 20161206
  Transmission Date: 20170207
  Serious: Yes (Other)
  Sender: FDA-Public Use
  Company Number: US-009507513-1612USA000028

PATIENT
  Age: 60 Year
  Sex: Female

DRUGS (2)
  1. CANNABINOL [Suspect]
     Active Substance: CANNABINOL
     Indication: SLEEP DISORDER THERAPY
  2. PEMBROLIZUMAB. [Suspect]
     Active Substance: PEMBROLIZUMAB
     Indication: ADRENAL GLAND CANCER
     Dosage: UNK, STRENGTH 100 MG
     Dates: start: 201608

REACTIONS (14)
  - Sinus headache [Unknown]
  - Feeding disorder [Unknown]
  - Nausea [Unknown]
  - Vomiting [Unknown]
  - Drug ineffective for unapproved indication [Unknown]
  - Malignant neoplasm progression [Unknown]
  - Bone pain [Unknown]
  - Asthenia [Unknown]
  - Off label use [Unknown]
  - Pyrexia [Unknown]
  - Malaise [Unknown]
  - Constipation [Unknown]
  - Faeces hard [Unknown]
  - Adverse event [Unknown]

NARRATIVE: CASE EVENT DATE: 2016
